FAERS Safety Report 8917375 (Version 1)
Quarter: 2012Q4

REPORT INFORMATION
  Report Type: 
  Country: US (occurrence: US)
  Receive Date: 20121120
  Receipt Date: 20121120
  Transmission Date: 20130627
  Serious: No
  Sender: FDA-Public Use
  Company Number: US-PFIZER INC-2012289375

PATIENT
  Age: 70 Year
  Sex: Male

DRUGS (5)
  1. LYRICA [Suspect]
     Indication: DIABETIC NEUROPATHY
     Dosage: 4 total pills twice a day - one in AM and one in PM
     Dates: start: 20121114
  2. SIMVASTATIN [Concomitant]
     Dosage: UNK
  3. METOPROLOL [Concomitant]
     Dosage: UNK
  4. DIOVAN [Concomitant]
     Dosage: UNK
  5. FLOMAX [Concomitant]
     Dosage: UNK

REACTIONS (3)
  - Somnolence [Unknown]
  - Dizziness [Unknown]
  - Weight decreased [Unknown]
